APPROVED DRUG PRODUCT: CALCIPOTRIENE AND BETHAMETHASONE DIPROPIONATE
Active Ingredient: BETAMETHASONE DIPROPIONATE; CALCIPOTRIENE
Strength: 0.064%;0.005%
Dosage Form/Route: SUSPENSION;TOPICAL
Application: A212367 | Product #001
Applicant: PADAGIS ISRAEL PHARMACEUTICALS LTD
Approved: Sep 11, 2020 | RLD: No | RS: No | Type: DISCN